FAERS Safety Report 25317966 (Version 1)
Quarter: 2025Q2

REPORT INFORMATION
  Report Type: Spontaneous
  Country: SE (occurrence: SE)
  Receive Date: 20250515
  Receipt Date: 20250515
  Transmission Date: 20250717
  Serious: Yes (Death)
  Sender: MERCK SHARP & DOHME LLC
  Company Number: None

PATIENT
  Age: 83 Year
  Sex: Female
  Weight: 54 kg

DRUGS (16)
  1. JANUVIA [Suspect]
     Active Substance: SITAGLIPTIN PHOSPHATE
     Dosage: 1X1
     Dates: start: 20240205
  2. XARELTO [Concomitant]
     Active Substance: RIVAROXABAN
  3. IMDUR [Concomitant]
     Active Substance: ISOSORBIDE MONONITRATE
  4. ACETAMINOPHEN [Concomitant]
     Active Substance: ACETAMINOPHEN
  5. TOUJEO [Concomitant]
     Active Substance: INSULIN GLARGINE
  6. Metoprolol 1A Farma Retard [Concomitant]
  7. CANDESARTAN [Concomitant]
     Active Substance: CANDESARTAN
  8. INSULIN ASPART [Concomitant]
     Active Substance: INSULIN ASPART
  9. JARDIANCE [Suspect]
     Active Substance: EMPAGLIFLOZIN
     Indication: Cardiac failure
     Dosage: 1X1
     Dates: start: 20230628
  10. MOVICOL [Concomitant]
     Active Substance: POLYETHYLENE GLYCOL 3350\POTASSIUM CHLORIDE\SODIUM BICARBONATE\SODIUM CHLORIDE
  11. CREON [Concomitant]
     Active Substance: PANCRELIPASE AMYLASE\PANCRELIPASE LIPASE\PANCRELIPASE PROTEASE
  12. Digoxin Evolan [Concomitant]
  13. Escitalopram Abacus Medicine [Concomitant]
  14. Furix [Concomitant]
  15. CARBOMER [Concomitant]
     Active Substance: CARBOMER
  16. NITROLINGUAL [Concomitant]
     Active Substance: NITROGLYCERIN

REACTIONS (1)
  - Euglycaemic diabetic ketoacidosis [Fatal]

NARRATIVE: CASE EVENT DATE: 20250428
